FAERS Safety Report 8175973-4 (Version None)
Quarter: 2012Q1

REPORT INFORMATION
  Report Type: 
  Country: None (occurrence: None)
  Receive Date: 20120228
  Receipt Date: 20120213
  Transmission Date: 20120608
  Serious: Yes (Life-Threatening)
  Sender: FDA-Public Use
  Company Number: FK201101078

PATIENT
  Age: 74 Year
  Sex: Male

DRUGS (11)
  1. PROPOFOL [Suspect]
     Indication: INDUCTION OF ANAESTHESIA
     Dosage: INTRAVENOUS (NOT OTHERWISE SPECIFIED)
     Route: 042
     Dates: start: 20110504, end: 20110504
  2. ATRACURIUM HOSPIRA (ATRACURIUM) (ATRACURIUM) [Suspect]
     Indication: VASCULAR OPERATION
  3. CEFAZOLIN SODIUM [Suspect]
     Indication: VASCULAR OPERATION
  4. VOLUVEN [Suspect]
     Indication: FLUID REPLACEMENT
     Dosage: INTRAVENOUS (NOT OTHERWISE SPECIFIED)
     Dates: start: 20110504, end: 20110504
  5. ULTIVA [Suspect]
     Indication: VASCULAR OPERATION
  6. PHENYLEPHRINE HYDROCHLORIDE [Suspect]
     Indication: VASCULAR OPERATION
  7. CALCIUM CHLORIDE [Suspect]
     Indication: VASCULAR OPERATION
  8. CALCIUM CHLORIDE [Suspect]
     Indication: VASCULAR OPERATION
     Dosage: INTRAVENOUS (NOT OTHERWISE SPECIFIED)
     Route: 042
  9. SUPRANE [Suspect]
     Indication: VASCULAR OPERATION
  10. KETAMINE HYDROCHLORIDE [Suspect]
     Indication: VASCULAR OPERATION
  11. EPHEDRINE RENAUDIN(EPHEDRINE HYDROCHLORIDE)(EPHEDRINE HYDROCHLORIDE) [Suspect]
     Indication: VASCULAR OPERATION

REACTIONS (7)
  - INTESTINAL ISCHAEMIA [None]
  - VASCULAR RESISTANCE SYSTEMIC INCREASED [None]
  - BLOOD LACTIC ACID INCREASED [None]
  - LEUKOCYTOSIS [None]
  - HYPOTENSION [None]
  - RHABDOMYOLYSIS [None]
  - RENAL FAILURE [None]
